FAERS Safety Report 9980479 (Version 1)
Quarter: 2014Q1

REPORT INFORMATION
  Report Type: Spontaneous
  Country: US (occurrence: None)
  Receive Date: 20140305
  Receipt Date: 20140305
  Transmission Date: 20141002
  Serious: Yes (Hospitalization, Disabling)
  Sender: FDA-Public Use
  Company Number: None

PATIENT
  Age: 72 Year
  Sex: Female
  Weight: 126 kg

DRUGS (1)
  1. PROTAMINE [Suspect]

REACTIONS (4)
  - Anaphylactic reaction [None]
  - Circulatory collapse [None]
  - Hypotension [None]
  - Cerebrovascular accident [None]
